FAERS Safety Report 15125239 (Version 1)
Quarter: 2018Q3

REPORT INFORMATION
  Report Type: Report from Study
  Country: DE (occurrence: DE)
  Receive Date: 20180710
  Receipt Date: 20180710
  Transmission Date: 20181010
  Serious: Yes (Hospitalization)
  Sender: FDA-Public Use
  Company Number: DE-SA-2018SA099220

PATIENT
  Age: 31 Year
  Sex: Female
  Weight: 58 kg

DRUGS (4)
  1. ALEMTUZUMAB [Suspect]
     Active Substance: ALEMTUZUMAB
     Indication: MULTIPLE SCLEROSIS
     Dosage: 12 MG,UNK
     Route: 041
     Dates: start: 20150713, end: 20150717
  2. ACICLOVIR [Concomitant]
     Active Substance: ACYCLOVIR
     Dosage: 550 MG, TID
     Route: 042
     Dates: start: 20180613
  3. ALEMTUZUMAB [Suspect]
     Active Substance: ALEMTUZUMAB
     Dosage: 12 MG,UNK
     Route: 041
     Dates: start: 20160727, end: 20160729
  4. THIAMAZOL [Concomitant]
     Active Substance: METHIMAZOLE
     Dosage: 10 MG
     Dates: start: 20180220

REACTIONS (3)
  - Herpes zoster [Recovered/Resolved]
  - Basedow^s disease [Not Recovered/Not Resolved]
  - Hyperthyroidism [Not Recovered/Not Resolved]

NARRATIVE: CASE EVENT DATE: 20170614
